FAERS Safety Report 10275472 (Version 1)
Quarter: 2014Q2

REPORT INFORMATION
  Report Type: Spontaneous
  Country: US (occurrence: None)
  Receive Date: 20140630
  Receipt Date: 20140630
  Transmission Date: 20141212
  Serious: Yes (Hospitalization)
  Sender: FDA-Public Use
  Company Number: None

PATIENT
  Age: 77 Year
  Sex: Male
  Weight: 67.6 kg

DRUGS (4)
  1. BEVACIZUMAB(RHUMAB VEGF) [Suspect]
  2. CARBOPLATIN [Suspect]
  3. CETUXIMAB (ERBITUX) (714692) [Suspect]
  4. PACLITAXEL(TAXOL) [Suspect]

REACTIONS (11)
  - Mental status changes [None]
  - Muscular weakness [None]
  - Belligerence [None]
  - Emphysema [None]
  - Confusional state [None]
  - Agitation [None]
  - Pneumonia aspiration [None]
  - Unresponsive to stimuli [None]
  - Body temperature increased [None]
  - Dementia [None]
  - Dehydration [None]
